FAERS Safety Report 14526710 (Version 1)
Quarter: 2018Q1

REPORT INFORMATION
  Report Type: Spontaneous
  Country: None (occurrence: FR)
  Receive Date: 20180213
  Receipt Date: 20180213
  Transmission Date: 20180509
  Serious: Yes (Hospitalization)
  Sender: FDA-Public Use
  Company Number: FR-MEDAC PHARMA, INC.-2041874

PATIENT
  Age: 83 Year
  Sex: Male
  Weight: 60 kg

DRUGS (8)
  1. TICAGRELOR. [Concomitant]
     Active Substance: TICAGRELOR
  2. APIXABAN [Concomitant]
     Active Substance: APIXABAN
  3. VALSARTAN. [Concomitant]
     Active Substance: VALSARTAN
  4. ESOMEPRAZOLE SODIUM. [Concomitant]
     Active Substance: ESOMEPRAZOLE SODIUM
  5. LANSOYL [Concomitant]
     Active Substance: MINERAL OIL
  6. ZOPICLONE [Concomitant]
     Active Substance: ZOPICLONE
  7. METOJECT [Suspect]
     Active Substance: METHOTREXATE SODIUM
     Indication: MIXED CONNECTIVE TISSUE DISEASE
     Route: 058
     Dates: start: 20170925, end: 20171002
  8. BISOPROLOL FUMARATE. [Concomitant]
     Active Substance: BISOPROLOL FUMARATE

REACTIONS (5)
  - Oral candidiasis [Recovered/Resolved]
  - Mucosal inflammation [Recovering/Resolving]
  - Lung disorder [Recovered/Resolved]
  - Pancytopenia [Recovered/Resolved]
  - Cell death [Recovering/Resolving]

NARRATIVE: CASE EVENT DATE: 201710
